FAERS Safety Report 5283507-7 (Version None)
Quarter: 2007Q1

REPORT INFORMATION
  Report Type: 
  Country: None (occurrence: None)
  Receive Date: 20070329
  Receipt Date: 20070329
  Transmission Date: 20070707
  Serious: Yes (Death, Hospitalization)
  Sender: FDA-Public Use
  Company Number: None

PATIENT
  Age: 68 Year
  Sex: Female

DRUGS (7)
  1. BEVACIZUMAB (GENENTECH) [Suspect]
     Indication: GLIOBLASTOMA MULTIFORME
     Dosage: 10 MG/KG
     Dates: start: 20070215
  2. ERLOTINIB (GENENTECH) [Suspect]
     Indication: GLIOBLASTOMA MULTIFORME
     Dosage: 200 MG/DAY
     Dates: start: 20070214
  3. TOPROL-XL [Concomitant]
  4. TIMOLOL MALEATE [Concomitant]
  5. NEXIUM [Concomitant]
  6. COUMADIN [Concomitant]
  7. DEXAMETHASONE [Concomitant]

REACTIONS (6)
  - GLIOBLASTOMA MULTIFORME [None]
  - HAEMATOCHEZIA [None]
  - HAEMOGLOBIN DECREASED [None]
  - MALIGNANT NEOPLASM PROGRESSION [None]
  - PERIPHERAL MOTOR NEUROPATHY [None]
  - SEDATION [None]
